FAERS Safety Report 8024753-9 (Version None)
Quarter: 2012Q1

REPORT INFORMATION
  Report Type: 
  Country: None (occurrence: None)
  Receive Date: 20120105
  Receipt Date: 20111221
  Transmission Date: 20120608
  Serious: Yes (Life-Threatening, Hospitalization)
  Sender: FDA-Public Use
  Company Number: JP-JNJFOC-20110903308

PATIENT
  Sex: Male
  Weight: 61 kg

DRUGS (9)
  1. RISPERDAL CONSTA [Suspect]
     Route: 030
     Dates: start: 20100707, end: 20101019
  2. DEPAKENE [Concomitant]
     Indication: MANIA
     Route: 048
     Dates: start: 20110323
  3. LONASEN [Concomitant]
     Route: 048
     Dates: start: 20110531
  4. ROHYPNOL [Concomitant]
     Indication: INSOMNIA
     Route: 065
  5. SENEVACUL [Concomitant]
     Indication: CONSTIPATION
     Route: 048
  6. LONASEN [Concomitant]
     Indication: SCHIZOPHRENIA
     Route: 048
  7. MAGNESIUM SULFATE [Concomitant]
     Indication: CONSTIPATION
     Route: 048
  8. RISPERDAL CONSTA [Suspect]
     Indication: SCHIZOPHRENIA
     Route: 030
     Dates: start: 20101020, end: 20110530
  9. RISPERDAL [Suspect]
     Indication: PRODUCT USED FOR UNKNOWN INDICATION
     Route: 048

REACTIONS (5)
  - SCHIZOPHRENIA [None]
  - GASTRIC ULCER [None]
  - SHOCK HAEMORRHAGIC [None]
  - EMOTIONAL DISORDER [None]
  - TREATMENT NONCOMPLIANCE [None]
